FAERS Safety Report 6769768-3 (Version None)
Quarter: 2010Q2

REPORT INFORMATION
  Report Type: 
  Country: None (occurrence: None)
  Receive Date: 20100615
  Receipt Date: 20100608
  Transmission Date: 20101027
  Serious: Yes (Death, Hospitalization)
  Sender: FDA-Public Use
  Company Number: CA-ROCHE-708247

PATIENT
  Age: 67 Year
  Sex: Female

DRUGS (1)
  1. XELODA [Suspect]
     Dosage: FREQUENCY: 14 DAYS ON, FOLLOWED BY 7 DAYS REST X 3 CYCLES
     Route: 048
     Dates: start: 20100101

REACTIONS (2)
  - DIARRHOEA [None]
  - HEPATIC FAILURE [None]
